FAERS Safety Report 23830587 (Version 3)
Quarter: 2024Q4

REPORT INFORMATION
  Report Type: Spontaneous
  Country: US (occurrence: US)
  Receive Date: 20240508
  Receipt Date: 20241004
  Transmission Date: 20250115
  Serious: Yes (Other)
  Sender: BAYER
  Company Number: US-BAYER-2024A065369

PATIENT
  Age: 46 Year
  Sex: Male

DRUGS (4)
  1. JIVI [Suspect]
     Active Substance: DAMOCTOCOG ALFA PEGOL
     Indication: Pain
     Dosage: 2200/571 UNITS 2600 IU, 2XW AND AS NEEDED
  2. JIVI [Suspect]
     Active Substance: DAMOCTOCOG ALFA PEGOL
     Indication: Pain
     Dosage: 2200/571 UNITS 2600 IU, 2XW AND AS NEEDED
  3. JIVI [Suspect]
     Active Substance: DAMOCTOCOG ALFA PEGOL
     Indication: Pain
     Dosage: INFUSED APPROX 10 TIMES SINCE LAST SHIP
  4. JIVI [Suspect]
     Active Substance: DAMOCTOCOG ALFA PEGOL
     Indication: Pain
     Dosage: 2176 UNITS/571 UNITS  2600 UNITS

REACTIONS (11)
  - Haemorrhage [None]
  - Haemarthrosis [None]
  - Haemarthrosis [None]
  - Haemorrhage [None]
  - Haemarthrosis [None]
  - Haemarthrosis [None]
  - Haemorrhage [None]
  - Irritability [None]
  - Product dose omission issue [None]
  - Off label use [None]
  - Treatment noncompliance [None]

NARRATIVE: CASE EVENT DATE: 20240428
